FAERS Safety Report 6818569-6 (Version None)
Quarter: 2010Q2

REPORT INFORMATION
  Report Type: 
  Country: None (occurrence: None)
  Receive Date: 20100630
  Receipt Date: 20100617
  Transmission Date: 20101027
  Serious: Yes (Other)
  Sender: FDA-Public Use
  Company Number: 1000014753

PATIENT
  Age: 33 Year
  Sex: Female

DRUGS (2)
  1. ESCITALOPRAM OXALATE [Suspect]
     Indication: POSTPARTUM DEPRESSION
     Dates: start: 20080101
  2. MINI PILL [Concomitant]

REACTIONS (1)
  - LYMPHADENOPATHY [None]
